FAERS Safety Report 9934541 (Version 2)
Quarter: 2014Q1

REPORT INFORMATION
  Report Type: Report from Study
  Country: FR (occurrence: FR)
  Receive Date: 20140228
  Receipt Date: 20140327
  Transmission Date: 20141002
  Serious: Yes (Hospitalization)
  Sender: FDA-Public Use
  Company Number: PHHY2014FR024035

PATIENT
  Age: 47 Year
  Sex: Female

DRUGS (2)
  1. MYCOPHENOLIC ACID [Suspect]
     Indication: PROPHYLAXIS AGAINST TRANSPLANT REJECTION
     Dosage: 1440 MG, QD
     Route: 048
     Dates: start: 20130911, end: 20140214
  2. MYCOPHENOLIC ACID [Suspect]
     Dosage: 720 MG, QD
     Route: 048
     Dates: start: 20140215

REACTIONS (5)
  - Inflammation [Unknown]
  - Diarrhoea [Unknown]
  - Renal cyst infection [Recovered/Resolved]
  - Escherichia urinary tract infection [Recovered/Resolved]
  - Gastrointestinal disorder [Unknown]
